FAERS Safety Report 5203848-9 (Version None)
Quarter: 2007Q1

REPORT INFORMATION
  Report Type: 
  Country: None (occurrence: None)
  Receive Date: 20070110
  Receipt Date: 20070102
  Transmission Date: 20070707
  Serious: Yes (Hospitalization)
  Sender: FDA-Public Use
  Company Number: US-SANOFI-SYNTHELABO-A03200700014

PATIENT
  Sex: Female
  Weight: 81.63 kg

DRUGS (6)
  1. CRESTOR [Concomitant]
     Route: 048
  2. LEVOTHROID [Concomitant]
     Route: 048
  3. GLIPIZIDE [Concomitant]
     Route: 048
  4. METOPROLOL SUCCINATE [Concomitant]
     Route: 048
  5. HYZAAR [Concomitant]
     Dosage: 100/12.5 MG DAILY
     Route: 048
  6. PLAVIX [Suspect]
     Indication: DRUG USE FOR UNKNOWN INDICATION
     Route: 048
     Dates: start: 20061001

REACTIONS (2)
  - ARTERIAL THROMBOSIS [None]
  - CONTUSION [None]
